FAERS Safety Report 4645810-0 (Version None)
Quarter: 2005Q2

REPORT INFORMATION
  Report Type: 
  Country: None (occurrence: None)
  Receive Date: 20050425
  Receipt Date: 20050414
  Transmission Date: 20051028
  Serious: Yes (Hospitalization)
  Sender: FDA-Public Use
  Company Number: S05-USA-01946-01

PATIENT
  Age: 53 Year
  Sex: Female
  Weight: 67.6 kg

DRUGS (4)
  1. LEXAPRO [Suspect]
     Indication: DEPRESSION
     Dosage: 10 MG QD PO
     Route: 048
     Dates: start: 20041201, end: 20050101
  2. IRON SULFATETHIAMIN COMPOUND TAB [Concomitant]
  3. MULTI-VITAMINS [Concomitant]
  4. CALCIUM WITH VITAMIN D [Concomitant]

REACTIONS (18)
  - BALANCE DISORDER [None]
  - BLOOD ALBUMIN DECREASED [None]
  - CLUMSINESS [None]
  - CONFUSIONAL STATE [None]
  - CONVULSION [None]
  - CSF PROTEIN INCREASED [None]
  - DEMENTIA [None]
  - DEPRESSION [None]
  - DYSARTHRIA [None]
  - DYSGRAPHIA [None]
  - DYSPNOEA [None]
  - LOSS OF CONSCIOUSNESS [None]
  - MENTAL STATUS CHANGES [None]
  - MUSCULOSKELETAL STIFFNESS [None]
  - MYOGLOBIN BLOOD INCREASED [None]
  - NEUROTOXICITY [None]
  - NUCLEAR MAGNETIC RESONANCE IMAGING BRAIN ABNORMAL [None]
  - THERAPY NON-RESPONDER [None]
